FAERS Safety Report 24405101 (Version 1)
Quarter: 2024Q4

REPORT INFORMATION
  Report Type: Spontaneous
  Country: IN (occurrence: IN)
  Receive Date: 20241007
  Receipt Date: 20241007
  Transmission Date: 20250115
  Serious: No
  Sender: ROCHE
  Company Number: IN-ROCHE-3546232

PATIENT
  Age: 48 Year
  Sex: Female

DRUGS (1)
  1. GAZYVA [Suspect]
     Active Substance: OBINUTUZUMAB
     Indication: Metastatic lymphoma
     Route: 042
     Dates: start: 20231129

REACTIONS (2)
  - Off label use [Unknown]
  - No adverse event [Unknown]
